FAERS Safety Report 25878908 (Version 2)
Quarter: 2025Q4

REPORT INFORMATION
  Report Type: Spontaneous
  Country: US (occurrence: US)
  Receive Date: 20251003
  Receipt Date: 20251023
  Transmission Date: 20260117
  Serious: Yes (Hospitalization, Other)
  Sender: TEVA
  Company Number: US-TEVA-VS-3376826

PATIENT
  Age: 76 Year
  Sex: Male

DRUGS (2)
  1. MODAFINIL [Suspect]
     Active Substance: MODAFINIL
     Indication: Sleep apnoea syndrome
     Dosage: TIME INTERVAL: 0.33333333 DAYS: OVER THE PAST 30 YEARS HAS BEEN 200 MG TABLETS, TAKING 2 TABLETS ...
     Route: 048
     Dates: start: 1997
  2. PROVIGIL [Suspect]
     Active Substance: MODAFINIL
     Indication: Sleep apnoea syndrome
     Dosage: TIME INTERVAL: 0.33333333 DAYS: OVER THE PAST 30 YEARS HAS BEEN 200 MG TABLETS, TAKING 2 TABLETS ...
     Route: 048
     Dates: start: 1997

REACTIONS (7)
  - Drug dependence [Not Recovered/Not Resolved]
  - Choking [Unknown]
  - Off label use [Unknown]
  - Hospitalisation [Unknown]
  - Overdose [Unknown]
  - Injury [Unknown]
  - Nervous system disorder [Unknown]
